FAERS Safety Report 7390494-4 (Version None)
Quarter: 2011Q2

REPORT INFORMATION
  Report Type: 
  Country: None (occurrence: None)
  Receive Date: 20110402
  Receipt Date: 20110323
  Transmission Date: 20111010
  Serious: Yes (Hospitalization)
  Sender: FDA-Public Use
  Company Number: US-AMGEN-USASP2011015800

PATIENT
  Sex: Female

DRUGS (1)
  1. ENBREL [Suspect]
     Indication: RHEUMATOID ARTHRITIS
     Dosage: 50 MG, QWK
     Dates: start: 20110301, end: 20110301

REACTIONS (4)
  - ANAPHYLACTIC REACTION [None]
  - INJECTION SITE SWELLING [None]
  - DYSPNOEA [None]
  - INJECTION SITE ERYTHEMA [None]
